FAERS Safety Report 22628008 (Version 1)
Quarter: 2023Q2

REPORT INFORMATION
  Report Type: Spontaneous
  Country: GB (occurrence: GB)
  Receive Date: 20230622
  Receipt Date: 20230622
  Transmission Date: 20230721
  Serious: Yes (Other)
  Sender: FDA-Public Use
  Company Number: None

PATIENT
  Age: 73 Year
  Sex: Female
  Weight: 102 kg

DRUGS (6)
  1. GABAPENTIN [Suspect]
     Active Substance: GABAPENTIN
     Indication: Product used for unknown indication
     Dosage: UNK (ONE IN THE MORNING FOR ONE WEEK, THEN ONE TWICE) (CAPSULE)
     Route: 065
     Dates: start: 20230519
  2. ATENOLOL [Concomitant]
     Active Substance: ATENOLOL
     Indication: Product used for unknown indication
     Dosage: UNK (USE AS DIRECTED)
     Route: 065
     Dates: start: 20220411
  3. COCODAMOL [Concomitant]
     Active Substance: ACETAMINOPHEN\CODEINE PHOSPHATE
     Indication: Product used for unknown indication
     Dosage: UNK, QID (TAKE 1 OR 2 TABLETS UP TO 4 TIMES/DAY)
     Route: 065
     Dates: start: 20220308
  4. CODEINE PHOSPHATE [Concomitant]
     Active Substance: CODEINE PHOSPHATE
     Indication: Product used for unknown indication
     Dosage: UNK, QD (TAKE ONE OR TWO)
     Route: 065
     Dates: start: 20230509, end: 20230523
  5. DICLOFENAC DIETHYLAMINE [Concomitant]
     Active Substance: DICLOFENAC DIETHYLAMINE
     Indication: Product used for unknown indication
     Dosage: 3 DOSAGE FORM, QD (APPLY)
     Route: 065
     Dates: start: 20220308
  6. LETROZOLE [Concomitant]
     Active Substance: LETROZOLE
     Indication: Product used for unknown indication
     Dosage: 1 DOSAGE FORM, QD
     Route: 065
     Dates: start: 20220308

REACTIONS (1)
  - Peripheral swelling [Recovered/Resolved]
